FAERS Safety Report 16340985 (Version 1)
Quarter: 2019Q2

REPORT INFORMATION
  Report Type: Spontaneous
  Country: CN (occurrence: CN)
  Receive Date: 20190522
  Receipt Date: 20190522
  Transmission Date: 20190711
  Serious: Yes (Other)
  Sender: FDA-Public Use
  Company Number: CN-ROCHE-2319985

PATIENT
  Age: 61 Year
  Sex: Female

DRUGS (8)
  1. CALCIUM LEVOFOLINATE [Concomitant]
     Active Substance: LEVOLEUCOVORIN CALCIUM
     Indication: LARGE INTESTINAL ULCER
     Dosage: AT DAY1
     Route: 065
     Dates: start: 20161017, end: 20170606
  2. BEVACIZUMAB. [Suspect]
     Active Substance: BEVACIZUMAB
     Indication: ADENOCARCINOMA
  3. OXALIPLATIN. [Concomitant]
     Active Substance: OXALIPLATIN
     Indication: LARGE INTESTINAL ULCER
     Dosage: AT DAY1
     Route: 065
     Dates: start: 20161017, end: 20170606
  4. FLUOROURACIL. [Concomitant]
     Active Substance: FLUOROURACIL
     Indication: LARGE INTESTINAL ULCER
     Dosage: AT DAY1
     Route: 065
     Dates: start: 20161017, end: 20170606
  5. OXALIPLATIN. [Concomitant]
     Active Substance: OXALIPLATIN
     Indication: ADENOCARCINOMA
  6. FLUOROURACIL. [Concomitant]
     Active Substance: FLUOROURACIL
     Indication: ADENOCARCINOMA
     Dosage: AT DAY2
     Route: 065
     Dates: start: 20161017
  7. BEVACIZUMAB. [Suspect]
     Active Substance: BEVACIZUMAB
     Indication: LARGE INTESTINAL ULCER
     Dosage: AT DAY0
     Route: 065
     Dates: start: 20161017, end: 20170606
  8. CALCIUM LEVOFOLINATE [Concomitant]
     Active Substance: LEVOLEUCOVORIN CALCIUM
     Indication: ADENOCARCINOMA

REACTIONS (2)
  - Gastrointestinal disorder [Unknown]
  - Bone marrow failure [Unknown]
